FAERS Safety Report 4731376-3 (Version None)
Quarter: 2005Q3

REPORT INFORMATION
  Report Type: 
  Country: None (occurrence: None)
  Receive Date: 20050802
  Receipt Date: 20050714
  Transmission Date: 20060218
  Serious: Yes (Death, Other)
  Sender: FDA-Public Use
  Company Number: 200516457GDDC

PATIENT
  Age: 50 Year
  Sex: Female

DRUGS (6)
  1. RIFATER [Suspect]
     Indication: TUBERCULOSIS
     Dosage: DOSE: 4 DAILY
     Route: 048
     Dates: start: 20050622, end: 20050623
  2. IMOVANE [Concomitant]
     Indication: SOMNOLENCE
     Route: 048
     Dates: start: 20050613, end: 20050618
  3. CIPROBAY [Concomitant]
     Indication: INFECTION
     Route: 042
     Dates: start: 20050615, end: 20050621
  4. STILNOX [Concomitant]
     Indication: SOMNOLENCE
     Route: 048
     Dates: start: 20050619, end: 20050622
  5. AUGMENTIN '125' [Concomitant]
     Indication: INFECTION
     Route: 042
     Dates: start: 20050612, end: 20050615
  6. INSULIN [Concomitant]
     Indication: DIABETES MELLITUS
     Route: 042
     Dates: start: 20050613, end: 20050626

REACTIONS (5)
  - ACIDOSIS [None]
  - CONFUSIONAL STATE [None]
  - CONVULSION [None]
  - LYMPHOCYTE COUNT INCREASED [None]
  - PYREXIA [None]
